FAERS Safety Report 25820370 (Version 1)
Quarter: 2025Q3

REPORT INFORMATION
  Report Type: Other
  Country: GB (occurrence: GB)
  Receive Date: 20250919
  Receipt Date: 20250919
  Transmission Date: 20251021
  Serious: Yes (Hospitalization)
  Sender: ANI
  Company Number: GB-ANIPHARMA-030564

PATIENT
  Age: 60 Year
  Sex: Male

DRUGS (10)
  1. PYRIDOSTIGMINE [Suspect]
     Active Substance: PYRIDOSTIGMINE
     Indication: Congenital myasthenic syndrome
  2. PREDNISOLONE [Concomitant]
     Active Substance: PREDNISOLONE
     Indication: Congenital myasthenic syndrome
     Route: 048
  3. AZATHIOPRINE [Concomitant]
     Active Substance: AZATHIOPRINE
     Indication: Congenital myasthenic syndrome
  4. MYCOPHENOLATE MOFETIL [Concomitant]
     Active Substance: MYCOPHENOLATE MOFETIL
     Indication: Congenital myasthenic syndrome
  5. IMMUNOGLOBULIN [Concomitant]
     Indication: Congenital myasthenic syndrome
  6. METHOTREXATE [Concomitant]
     Active Substance: METHOTREXATE
     Indication: Congenital myasthenic syndrome
  7. RITUXIMAB [Concomitant]
     Active Substance: RITUXIMAB
     Indication: Congenital myasthenic syndrome
  8. PREDNISOLONE [Concomitant]
     Active Substance: PREDNISOLONE
     Indication: Congenital myasthenic syndrome
  9. PREDNISOLONE [Concomitant]
     Active Substance: PREDNISOLONE
     Indication: Congenital myasthenic syndrome
     Route: 048
  10. PREDNISOLONE [Concomitant]
     Active Substance: PREDNISOLONE
     Indication: Congenital myasthenic syndrome
     Route: 048

REACTIONS (1)
  - Condition aggravated [Unknown]
